FAERS Safety Report 5293594-8 (Version None)
Quarter: 2007Q2

REPORT INFORMATION
  Report Type: 
  Country: None (occurrence: None)
  Receive Date: 20070411
  Receipt Date: 20070409
  Transmission Date: 20071010
  Serious: Yes (Other)
  Sender: FDA-Public Use
  Company Number: JP-BRISTOL-MYERS SQUIBB COMPANY-13744206

PATIENT
  Age: 64 Year
  Sex: Male

DRUGS (4)
  1. TAXOL [Suspect]
     Indication: GASTRIC CANCER RECURRENT
     Route: 041
     Dates: start: 20050601
  2. RANDA [Concomitant]
     Indication: GASTRIC CANCER RECURRENT
     Route: 033
     Dates: start: 20050601, end: 20060301
  3. RANDA [Concomitant]
     Route: 042
     Dates: start: 20060401
  4. TS-1 [Concomitant]
     Indication: GASTRIC CANCER RECURRENT
     Route: 048
     Dates: start: 20050601

REACTIONS (2)
  - NEUROPATHY PERIPHERAL [None]
  - OCULOMUCOCUTANEOUS SYNDROME [None]
